FAERS Safety Report 14272374 (Version 1)
Quarter: 2017Q4

REPORT INFORMATION
  Report Type: Spontaneous
  Country: CA (occurrence: CA)
  Receive Date: 20171211
  Receipt Date: 20171211
  Transmission Date: 20180321
  Serious: Yes (Hospitalization)
  Sender: FDA-Public Use
  Company Number: CA-OTSUKA-DJ201502589

PATIENT

DRUGS (1)
  1. ABILIFY [Suspect]
     Active Substance: ARIPIPRAZOLE
     Indication: CATATONIA
     Route: 048

REACTIONS (3)
  - Dystonia [Unknown]
  - Off label use [Unknown]
  - Psychotic disorder [Unknown]
